FAERS Safety Report 4438976-9 (Version None)
Quarter: 2004Q3

REPORT INFORMATION
  Report Type: 
  Country: None (occurrence: None)
  Receive Date: 20040830
  Receipt Date: 20040816
  Transmission Date: 20050211
  Serious: Yes (Hospitalization)
  Sender: FDA-Public Use
  Company Number: 2004UW17703

PATIENT
  Age: 31 Year
  Sex: Male

DRUGS (2)
  1. ATACAND [Suspect]
     Indication: HYPERTENSION
     Dosage: 8 MG DAILY PO
     Route: 048
     Dates: start: 20021001
  2. HYDROCHLOROTHIAZIDE [Concomitant]

REACTIONS (2)
  - RENAL NEOPLASM [None]
  - TRANSAMINASES INCREASED [None]
